FAERS Safety Report 7677263-2 (Version None)
Quarter: 2011Q3

REPORT INFORMATION
  Report Type: 
  Country: None (occurrence: None)
  Receive Date: 20110810
  Receipt Date: 20110810
  Transmission Date: 20111222
  Serious: No
  Sender: FDA-Public Use
  Company Number: None

PATIENT
  Sex: Female

DRUGS (1)
  1. FORTEO [Suspect]

REACTIONS (5)
  - INJECTION SITE PAIN [None]
  - FATIGUE [None]
  - INJECTION SITE PRURITUS [None]
  - PAIN [None]
  - INJECTION SITE ERYTHEMA [None]
